FAERS Safety Report 7012432-6 (Version None)
Quarter: 2010Q3

REPORT INFORMATION
  Report Type: 
  Country: None (occurrence: None)
  Receive Date: 20100924
  Receipt Date: 20100917
  Transmission Date: 20110219
  Serious: Yes (Other)
  Sender: FDA-Public Use
  Company Number: DE-JNJFOC-20100903881

PATIENT
  Sex: Female
  Weight: 88 kg

DRUGS (7)
  1. INVEGA [Suspect]
     Indication: PRODUCT USED FOR UNKNOWN INDICATION
     Route: 048
  2. INVEGA [Suspect]
     Route: 048
  3. METYSOLON [Concomitant]
     Route: 048
  4. MAGNESIUM [Concomitant]
     Route: 048
  5. CALCIUM [Concomitant]
     Route: 048
  6. PREDNITOP [Concomitant]
     Indication: PRURITUS
     Route: 048
  7. SALBUTAMOL [Concomitant]
     Route: 055

REACTIONS (19)
  - ANXIETY [None]
  - ASTHMA [None]
  - BLOOD CALCIUM INCREASED [None]
  - DIZZINESS [None]
  - DYSPNOEA [None]
  - GASTROINTESTINAL DISORDER [None]
  - GENERALISED OEDEMA [None]
  - HYPOTENSION [None]
  - MUSCULOSKELETAL STIFFNESS [None]
  - OEDEMA PERIPHERAL [None]
  - PULMONARY OEDEMA [None]
  - RASH [None]
  - RENAL PAIN [None]
  - SLEEP DISORDER [None]
  - SUICIDAL IDEATION [None]
  - VEIN PAIN [None]
  - VISUAL IMPAIRMENT [None]
  - VITREOUS OPACITIES [None]
  - WEIGHT INCREASED [None]
